FAERS Safety Report 23999577 (Version 6)
Quarter: 2024Q4

REPORT INFORMATION
  Report Type: Report from Study
  Country: CA (occurrence: CA)
  Receive Date: 20240621
  Receipt Date: 20241104
  Transmission Date: 20250115
  Serious: Yes (Other)
  Sender: OTSUKA
  Company Number: CA-OTSUKA-2022_037709

PATIENT
  Age: 38 Year
  Sex: Male

DRUGS (3)
  1. ARIPIPRAZOLE [Suspect]
     Active Substance: ARIPIPRAZOLE
     Indication: Product used for unknown indication
     Dosage: 300 MG, EVERY 4 WEEKS (EVERY 28 DAYS)
     Route: 030
  2. ARIPIPRAZOLE [Suspect]
     Active Substance: ARIPIPRAZOLE
     Dosage: 300 MG EVERY 3 WEEKS/EVERY 21 DAYS
     Route: 030
  3. ABILIFY [Suspect]
     Active Substance: ARIPIPRAZOLE
     Indication: Product used for unknown indication
     Dosage: 5 MG, AS NECESSARY
     Route: 048

REACTIONS (11)
  - Depressed mood [Recovering/Resolving]
  - COVID-19 [Recovered/Resolved]
  - Nervousness [Unknown]
  - Irritability [Unknown]
  - Headache [Recovering/Resolving]
  - Anxiety [Unknown]
  - Product dose omission issue [Unknown]
  - Underdose [Unknown]
  - Unemployment [Recovered/Resolved]
  - Off label use [Unknown]
  - Inappropriate schedule of product administration [Unknown]

NARRATIVE: CASE EVENT DATE: 20220718
